FAERS Safety Report 20528757 (Version 1)
Quarter: 2022Q1

REPORT INFORMATION
  Report Type: Spontaneous
  Country: BR (occurrence: BR)
  Receive Date: 20220228
  Receipt Date: 20220228
  Transmission Date: 20220423
  Serious: Yes (Other)
  Sender: FDA-Public Use
  Company Number: BR-009507513-2202BRA007913

PATIENT
  Sex: Female

DRUGS (3)
  1. KEYTRUDA [Suspect]
     Active Substance: PEMBROLIZUMAB
  2. PEMETREXED [Suspect]
     Active Substance: PEMETREXED
  3. PLATINUM [Suspect]
     Active Substance: PLATINUM

REACTIONS (1)
  - Encephalopathy [Unknown]
